FAERS Safety Report 14637657 (Version 1)
Quarter: 2018Q1

REPORT INFORMATION
  Report Type: Spontaneous
  Country: FR (occurrence: FR)
  Receive Date: 20180314
  Receipt Date: 20180314
  Transmission Date: 20180509
  Serious: Yes (Hospitalization)
  Sender: FDA-Public Use
  Company Number: FR-TEVA-2018-FR-867863

PATIENT
  Age: 3 Year
  Sex: Female
  Weight: 12.8 kg

DRUGS (1)
  1. AMOXICILLINE [Suspect]
     Active Substance: AMOXICILLIN
     Indication: TONSILLITIS
     Route: 048

REACTIONS (3)
  - Pyrexia [Recovering/Resolving]
  - Neutrophilia [Not Recovered/Not Resolved]
  - Rash maculo-papular [Recovering/Resolving]
